FAERS Safety Report 16046609 (Version 1)
Quarter: 2019Q1

REPORT INFORMATION
  Report Type: Spontaneous
  Country: US (occurrence: US)
  Receive Date: 20190208
  Receipt Date: 20190208
  Transmission Date: 20190418
  Serious: Yes (Other)
  Sender: FDA-Public Use
  Company Number: None

PATIENT
  Age: 57 Year
  Weight: 52.62 kg

DRUGS (5)
  1. CLARITON [Concomitant]
     Active Substance: UNSPECIFIED INGREDIENT
  2. GINSENG [Concomitant]
     Active Substance: ASIAN GINSENG
  3. DULCOLAX NOS [Suspect]
     Active Substance: BISACODYL OR DOCUSATE SODIUM
     Indication: CONSTIPATION
     Dosage: ?          QUANTITY:5 MG MILLIGRAM(S);?
     Route: 048
     Dates: start: 20190113, end: 20190113
  4. WELLBUTRIN [Concomitant]
     Active Substance: BUPROPION HYDROCHLORIDE
  5. CALCIUM [Concomitant]
     Active Substance: CALCIUM

REACTIONS (10)
  - Nausea [None]
  - Dehydration [None]
  - Headache [None]
  - Dyspepsia [None]
  - Muscle spasms [None]
  - Diarrhoea [None]
  - Vomiting [None]
  - Abdominal pain upper [None]
  - Pyrexia [None]
  - Malaise [None]

NARRATIVE: CASE EVENT DATE: 20190130
